FAERS Safety Report 7974668-7 (Version None)
Quarter: 2011Q4

REPORT INFORMATION
  Report Type: 
  Country: None (occurrence: None)
  Receive Date: 20111213
  Receipt Date: 20111205
  Transmission Date: 20120403
  Serious: Yes (Hospitalization, Other)
  Sender: FDA-Public Use
  Company Number: PHHY2011FR38428

PATIENT
  Sex: Male
  Weight: 60 kg

DRUGS (1)
  1. ZOMETA [Suspect]
     Indication: METASTASES TO BONE
     Dosage: 04 MG, UNK
     Route: 042
     Dates: end: 20100707

REACTIONS (8)
  - HYPOCALCAEMIA [None]
  - GENERAL PHYSICAL HEALTH DETERIORATION [None]
  - DIARRHOEA [None]
  - CONVULSION [None]
  - ABDOMINAL PAIN UPPER [None]
  - MALAISE [None]
  - BACK PAIN [None]
  - DEHYDRATION [None]
